FAERS Safety Report 7701662-3 (Version None)
Quarter: 2011Q3

REPORT INFORMATION
  Report Type: 
  Country: None (occurrence: None)
  Receive Date: 20110822
  Receipt Date: 20110809
  Transmission Date: 20111222
  Serious: Yes (Hospitalization, Other)
  Sender: FDA-Public Use
  Company Number: US-BAYER-201034566NA

PATIENT
  Age: 30 Year
  Sex: Female
  Weight: 79.365 kg

DRUGS (1)
  1. YAZ [Suspect]
     Indication: ORAL CONTRACEPTION
     Dosage: UNK UNK, UNK
     Route: 048
     Dates: start: 20080301, end: 20080901

REACTIONS (4)
  - PULMONARY EMBOLISM [None]
  - FEAR OF DISEASE [None]
  - CHEST PAIN [None]
  - DYSPNOEA [None]
